FAERS Safety Report 25998326 (Version 1)
Quarter: 2025Q4

REPORT INFORMATION
  Report Type: Spontaneous
  Country: EU (occurrence: EU)
  Receive Date: 20251105
  Receipt Date: 20251105
  Transmission Date: 20260118
  Serious: Yes (Hospitalization, Other)
  Sender: MERCK SHARP & DOHME LLC
  Company Number: None

PATIENT
  Age: 52 Year
  Sex: Female

DRUGS (1)
  1. PEMBROLIZUMAB [Suspect]
     Active Substance: PEMBROLIZUMAB
     Indication: Breast neoplasm
     Dosage: 200 MG EVERY 21 DAYS
     Route: 042
     Dates: start: 202408, end: 202509

REACTIONS (2)
  - Varicella zoster virus infection [Recovered/Resolved with Sequelae]
  - Thyroiditis [Recovering/Resolving]

NARRATIVE: CASE EVENT DATE: 20250522
